FAERS Safety Report 6654527-2 (Version None)
Quarter: 2010Q1

REPORT INFORMATION
  Report Type: 
  Country: None (occurrence: None)
  Receive Date: 20100326
  Receipt Date: 20100317
  Transmission Date: 20100710
  Serious: Yes (Hospitalization)
  Sender: FDA-Public Use
  Company Number: BR-ROCHE-692958

PATIENT
  Sex: Female

DRUGS (1)
  1. TAMIFLU [Suspect]
     Dosage: START DATE : 2010
     Route: 065

REACTIONS (1)
  - RESPIRATORY DISORDER [None]
